FAERS Safety Report 10730451 (Version 1)
Quarter: 2015Q1

REPORT INFORMATION
  Report Type: Spontaneous
  Country: US (occurrence: None)
  Receive Date: 20150121
  Receipt Date: 20150121
  Transmission Date: 20150721
  Serious: No
  Sender: FDA-Public Use
  Company Number: None

PATIENT
  Age: 65 Year
  Sex: Female
  Weight: 47.17 kg

DRUGS (1)
  1. IC CLARITHROMYCIN 500 MG [Suspect]
     Active Substance: CLARITHROMYCIN
     Indication: INFECTION PROPHYLAXIS
     Dosage: 1 TABLET, TWICE DAILY, TAKEN BY MOUTH
     Route: 048
     Dates: start: 20150117, end: 20150118

REACTIONS (4)
  - Nausea [None]
  - Diarrhoea [None]
  - Dysgeusia [None]
  - Abdominal pain [None]

NARRATIVE: CASE EVENT DATE: 20150117
